FAERS Safety Report 8885772 (Version 1)
Quarter: 2012Q4

REPORT INFORMATION
  Report Type: 
  Country: CA (occurrence: CA)
  Receive Date: 20121102
  Receipt Date: 20121102
  Transmission Date: 20130627
  Serious: Yes (Hospitalization, Other)
  Sender: FDA-Public Use
  Company Number: CA-PFIZER INC-2012267910

PATIENT
  Age: 47 Year
  Sex: Female

DRUGS (1)
  1. CELEBREX [Suspect]
     Dosage: 200 mg, 2x/day
     Dates: start: 20030804, end: 20101124

REACTIONS (1)
  - IgA nephropathy [Not Recovered/Not Resolved]
